FAERS Safety Report 6013424-6 (Version None)
Quarter: 2008Q4

REPORT INFORMATION
  Report Type: 
  Country: None (occurrence: None)
  Receive Date: 20081219
  Receipt Date: 20081209
  Transmission Date: 20090506
  Serious: Yes (Other)
  Sender: FDA-Public Use
  Company Number: US-PFIZER INC-2008076371

PATIENT
  Sex: Female
  Weight: 43.1 kg

DRUGS (9)
  1. MARAVIROC [Suspect]
     Indication: HIV INFECTION
     Route: 048
     Dates: start: 20080806
  2. DARUNAVIR [Concomitant]
     Indication: HIV INFECTION
     Route: 048
     Dates: start: 20080806
  3. RALTEGRAVIR [Concomitant]
     Indication: HIV INFECTION
     Route: 048
     Dates: start: 20080806
  4. LIPITOR [Concomitant]
     Dosage: 1 TAB,Q DAY
     Route: 048
     Dates: start: 20070716
  5. BACTRIM DS [Concomitant]
     Dosage: 1 TAB,Q DAY
     Route: 048
     Dates: start: 19960202
  6. MOTRIN [Concomitant]
     Dosage: 1 TAB,3 X /DAY
     Route: 048
     Dates: start: 20020702
  7. VICODIN [Concomitant]
     Dosage: 1 TAB,2 X /DAY, PRN
     Dates: start: 20080905
  8. RITONAVIR [Concomitant]
     Route: 048
     Dates: start: 20080806
  9. TRUVADA [Concomitant]
     Dosage: 1 TAB,QDAY
     Route: 048
     Dates: start: 20080806

REACTIONS (1)
  - COLON CANCER [None]
